FAERS Safety Report 4622499-8 (Version None)
Quarter: 2005Q1

REPORT INFORMATION
  Report Type: 
  Country: None (occurrence: None)
  Receive Date: 20050325
  Receipt Date: 20050325
  Transmission Date: 20050727
  Serious: Yes (Other)
  Sender: FDA-Public Use
  Company Number: None

PATIENT
  Age: 59 Year
  Sex: Female
  Weight: 78.4723 kg

DRUGS (9)
  1. CORICIDIN D SRT [Suspect]
     Indication: NASOPHARYNGITIS
     Dosage: ORAL
     Route: 048
  2. ROBITUSSIN-CF NO DOSE FORM [Suspect]
     Dates: start: 20001101
  3. CONTAC 12 HOUR [Suspect]
     Dosage: ORAL
     Route: 048
  4. ALKA SELTZER PLUS COLD + FLU (APAP/CHLORPHENIRAMINE/        EFFERVESCE [Suspect]
     Dosage: ORAL
     Route: 048
  5. HALL'S MENTHO-LYPTUS [Concomitant]
  6. DIMETAPP [Concomitant]
  7. PREMARIN [Concomitant]
  8. VITAMIN E [Concomitant]
  9. CALCIUM GLUCONATE [Concomitant]

REACTIONS (2)
  - CEREBROVASCULAR ACCIDENT [None]
  - MONOPLEGIA [None]
